FAERS Safety Report 4879309-3 (Version None)
Quarter: 2005Q4

REPORT INFORMATION
  Report Type: 
  Country: None (occurrence: None)
  Receive Date: 20051207
  Receipt Date: 20041013
  Transmission Date: 20060501
  Serious: Yes (Other)
  Sender: FDA-Public Use
  Company Number: 2004077629

PATIENT
  Sex: Male

DRUGS (1)
  1. VIAGRA [Suspect]
     Indication: ILL-DEFINED DISORDER
     Dosage: 100 MG (100 MG, UNKNOWN), UNKNOWN
     Route: 065

REACTIONS (3)
  - ERECTION INCREASED [None]
  - INTENTIONAL DRUG MISUSE [None]
  - LIBIDO DECREASED [None]
